FAERS Safety Report 8711701 (Version 1)
Quarter: 2012Q4

REPORT INFORMATION
  Report Type: 
  Country: US (occurrence: US)
  Receive Date: 20120829
  Receipt Date: 20120829
  Transmission Date: 20130627
  Serious: Yes (Other)
  Sender: FDA-Public Use
  Company Number: US-ROCHE-1096769

PATIENT
  Sex: Female
  Weight: 52.2 kg

DRUGS (16)
  1. XOLAIR [Suspect]
     Indication: ASTHMA
  2. CLARITIN [Concomitant]
  3. ZYRTEC [Concomitant]
  4. CLARINEX [Concomitant]
  5. ALAVERT [Concomitant]
  6. BENADRYL [Concomitant]
  7. ASTELIN [Concomitant]
  8. FLONASE [Concomitant]
  9. NASONEX [Concomitant]
  10. AFRIN [Concomitant]
  11. CLARITIN-D [Concomitant]
  12. ZYRTEC-D [Concomitant]
  13. CLARINEX-D [Concomitant]
  14. ADVAIR [Concomitant]
  15. MEDROL [Concomitant]
  16. PREDNISONE [Concomitant]

REACTIONS (11)
  - Hypersensitivity [Unknown]
  - Dyspnoea [Unknown]
  - Cough [Unknown]
  - Wheezing [Unknown]
  - Sinus headache [Unknown]
  - Urticaria [Unknown]
  - Rhinitis [Unknown]
  - Sinusitis [Unknown]
  - Rash [Unknown]
  - Pruritus [Unknown]
  - Unevaluable event [Unknown]
